FAERS Safety Report 8127106-8 (Version None)
Quarter: 2012Q1

REPORT INFORMATION
  Report Type: 
  Country: None (occurrence: None)
  Receive Date: 20120210
  Receipt Date: 20120131
  Transmission Date: 20120608
  Serious: No
  Sender: FDA-Public Use
  Company Number: US-JNJFOC-20120200578

PATIENT
  Age: 41 Year
  Sex: Female
  Weight: 107.96 kg

DRUGS (1)
  1. INVEGA [Suspect]
     Indication: SCHIZOPHRENIA
     Route: 048

REACTIONS (3)
  - GINGIVAL PAIN [None]
  - EAR PAIN [None]
  - INSOMNIA [None]
